FAERS Safety Report 12676553 (Version 2)
Quarter: 2016Q3

REPORT INFORMATION
  Report Type: Spontaneous
  Country: US (occurrence: US)
  Receive Date: 20160823
  Receipt Date: 20160930
  Transmission Date: 20161109
  Serious: No
  Sender: FDA-Public Use
  Company Number: US-GLAXOSMITHKLINE-US2016115014

PATIENT
  Age: 61 Year
  Sex: Male

DRUGS (8)
  1. ZETIA [Concomitant]
     Active Substance: EZETIMIBE
  2. GLIMEPIRIDE. [Concomitant]
     Active Substance: GLIMEPIRIDE
  3. METFORMIN [Concomitant]
     Active Substance: METFORMIN HYDROCHLORIDE
  4. LISINOPRIL. [Concomitant]
     Active Substance: LISINOPRIL
  5. LITHIUM. [Concomitant]
     Active Substance: LITHIUM
  6. GABAPENTIN. [Concomitant]
     Active Substance: GABAPENTIN
  7. CLOPIDOGREL BISULFATE. [Concomitant]
     Active Substance: CLOPIDOGREL BISULFATE
  8. TANZEUM [Suspect]
     Active Substance: ALBIGLUTIDE
     Indication: DIABETES MELLITUS
     Dosage: 30 MG, WE
     Route: 042
     Dates: start: 201607

REACTIONS (4)
  - Product quality issue [Unknown]
  - Device breakage [Unknown]
  - Drug ineffective [Recovering/Resolving]
  - Device issue [Unknown]

NARRATIVE: CASE EVENT DATE: 201608
